FAERS Safety Report 19464333 (Version 3)
Quarter: 2021Q3

REPORT INFORMATION
  Report Type: Report from Study
  Country: None (occurrence: US)
  Receive Date: 20210626
  Receipt Date: 20210716
  Transmission Date: 20211014
  Serious: Yes (Other)
  Sender: FDA-Public Use
  Company Number: US-ABBVIE-21K-163-3949191-00

PATIENT
  Age: 55 Year
  Sex: Female

DRUGS (4)
  1. MODERNA COVID?19 VACCINE [Concomitant]
     Active Substance: CX-024414
     Indication: COVID-19 IMMUNISATION
     Route: 030
     Dates: start: 202103, end: 202103
  2. MODERNA COVID?19 VACCINE [Concomitant]
     Active Substance: CX-024414
     Route: 030
     Dates: start: 202104, end: 202104
  3. METOPROLOL. [Concomitant]
     Active Substance: METOPROLOL
     Indication: BLOOD PRESSURE MEASUREMENT
  4. HUMIRA [Suspect]
     Active Substance: ADALIMUMAB
     Indication: RHEUMATOID ARTHRITIS
     Dosage: CITRATE FREE
     Route: 058
     Dates: start: 2019

REACTIONS (5)
  - Exostosis [Unknown]
  - Rotator cuff syndrome [Unknown]
  - Tendon rupture [Unknown]
  - Pain [Not Recovered/Not Resolved]
  - Periarthritis [Recovering/Resolving]

NARRATIVE: CASE EVENT DATE: 202012
